FAERS Safety Report 17799029 (Version 1)
Quarter: 2020Q2

REPORT INFORMATION
  Report Type: Spontaneous
  Country: FR (occurrence: FR)
  Receive Date: 20200518
  Receipt Date: 20200518
  Transmission Date: 20200714
  Serious: Yes (Hospitalization)
  Sender: FDA-Public Use
  Company Number: FR-MYLANLABS-2020M1047836

PATIENT
  Age: 45 Year
  Sex: Male
  Weight: 80.9 kg

DRUGS (1)
  1. MIDAZOLAM MYLAN [Suspect]
     Active Substance: MIDAZOLAM HYDROCHLORIDE
     Indication: ANXIETY
     Dosage: 0.5 MILLIGRAM, QH
     Route: 058
     Dates: start: 20200402, end: 20200418

REACTIONS (3)
  - Respiratory rate decreased [Recovered/Resolved]
  - Sedation [Recovered/Resolved]
  - Medication error [Recovered/Resolved]

NARRATIVE: CASE EVENT DATE: 20200418
